FAERS Safety Report 17535900 (Version 3)
Quarter: 2020Q2

REPORT INFORMATION
  Report Type: Spontaneous
  Country: US (occurrence: US)
  Receive Date: 20200313
  Receipt Date: 20200403
  Transmission Date: 20200713
  Serious: No
  Sender: FDA-Public Use
  Company Number: US-BIOGEN-2020BI00848692

PATIENT
  Age: 58 Year
  Sex: Female

DRUGS (7)
  1. TECFIDERA [Suspect]
     Active Substance: DIMETHYL FUMARATE
     Route: 048
     Dates: start: 2019
  2. XANAX [Concomitant]
     Active Substance: ALPRAZOLAM
     Route: 065
  3. TECFIDERA [Suspect]
     Active Substance: DIMETHYL FUMARATE
     Route: 048
  4. CALCIUM [Concomitant]
     Active Substance: CALCIUM
     Route: 065
  5. TECFIDERA [Suspect]
     Active Substance: DIMETHYL FUMARATE
     Indication: MULTIPLE SCLEROSIS
     Route: 048
     Dates: start: 20191004
  6. ATORVASTATIN [Concomitant]
     Active Substance: ATORVASTATIN
     Route: 065
  7. MECLIZINE [Concomitant]
     Active Substance: MECLIZINE HYDROCHLORIDE
     Route: 065

REACTIONS (7)
  - Product dose omission [Not Recovered/Not Resolved]
  - Flushing [Recovered/Resolved with Sequelae]
  - Multiple sclerosis [Unknown]
  - Alopecia [Recovered/Resolved with Sequelae]
  - Erythema [Not Recovered/Not Resolved]
  - Pruritus [Recovered/Resolved with Sequelae]
  - Hypothyroidism [Recovered/Resolved with Sequelae]

NARRATIVE: CASE EVENT DATE: 20200310
